FAERS Safety Report 25433583 (Version 1)
Quarter: 2025Q2

REPORT INFORMATION
  Report Type: Spontaneous
  Country: CA (occurrence: CA)
  Receive Date: 20250613
  Receipt Date: 20250613
  Transmission Date: 20250716
  Serious: Yes (Hospitalization, Other)
  Sender: PFIZER
  Company Number: CA-PFIZER INC-PV202500070192

PATIENT
  Age: 81 Year
  Sex: Female

DRUGS (6)
  1. IXIFI [Suspect]
     Active Substance: INFLIXIMAB-QBTX
     Indication: Crohn^s disease
     Dates: start: 20250415
  2. IXIFI [Suspect]
     Active Substance: INFLIXIMAB-QBTX
  3. AMLODIPINE [Concomitant]
     Active Substance: AMLODIPINE BESYLATE
  4. LEVODOPA [Concomitant]
     Active Substance: LEVODOPA
  5. METFORMIN [Concomitant]
     Active Substance: METFORMIN HYDROCHLORIDE
  6. VIT D [VITAMIN D NOS] [Concomitant]

REACTIONS (3)
  - Blood glucose increased [Unknown]
  - Cystitis [Unknown]
  - Urinary retention [Unknown]

NARRATIVE: CASE EVENT DATE: 20250101
